FAERS Safety Report 8417125-6 (Version None)
Quarter: 2012Q2

REPORT INFORMATION
  Report Type: 
  Country: None (occurrence: None)
  Receive Date: 20120606
  Receipt Date: 20120529
  Transmission Date: 20120825
  Serious: Yes (Life-Threatening, Hospitalization, Other)
  Sender: FDA-Public Use
  Company Number: US-ACTELION-A-US2012-63627

PATIENT

DRUGS (3)
  1. PRADAXA [Concomitant]
  2. ASPIRIN [Concomitant]
  3. TRACLEER [Suspect]
     Indication: PULMONARY ARTERIAL HYPERTENSION
     Dosage: UNK MG, UNK
     Route: 048
     Dates: start: 20120312

REACTIONS (9)
  - PULMONARY HYPERTENSION [None]
  - PLEURAL EFFUSION [None]
  - RESPIRATORY DISORDER [None]
  - FATIGUE [None]
  - CARDIAC DISORDER [None]
  - CARDIAC FAILURE CONGESTIVE [None]
  - HEART RATE IRREGULAR [None]
  - DYSPNOEA [None]
  - OXYGEN SATURATION DECREASED [None]
